FAERS Safety Report 24462287 (Version 1)
Quarter: 2024Q4

REPORT INFORMATION
  Report Type: Spontaneous
  Country: CA (occurrence: CA)
  Receive Date: 20241018
  Receipt Date: 20241018
  Transmission Date: 20250115
  Serious: No
  Sender: ROCHE
  Company Number: CA-ROCHE-3579644

PATIENT
  Age: 69 Year
  Sex: Female

DRUGS (3)
  1. RITUXIMAB [Suspect]
     Active Substance: RITUXIMAB
     Indication: Rheumatoid arthritis
     Route: 042
  2. METHOTREXATE [Suspect]
     Active Substance: METHOTREXATE
     Indication: Product used for unknown indication
     Route: 013
  3. LEFLUNOMIDE [Suspect]
     Active Substance: LEFLUNOMIDE
     Indication: Product used for unknown indication
     Route: 048

REACTIONS (10)
  - Abdominal discomfort [Unknown]
  - Cardiac disorder [Unknown]
  - Cough [Unknown]
  - Drug ineffective [Unknown]
  - Erythema [Unknown]
  - Headache [Unknown]
  - Hypotension [Unknown]
  - Muscle spasms [Unknown]
  - Pyrexia [Unknown]
  - Seborrhoeic dermatitis [Unknown]
